FAERS Safety Report 9811226 (Version 2)
Quarter: 2014Q1

REPORT INFORMATION
  Report Type: Spontaneous
  Country: US (occurrence: US)
  Receive Date: 20140110
  Receipt Date: 20140110
  Transmission Date: 20141002
  Serious: Yes (Hospitalization, Other)
  Sender: FDA-Public Use
  Company Number: US-SANOFI-AVENTIS-2013SA020588

PATIENT
  Age: 64 Year
  Sex: Male
  Weight: 65.77 kg

DRUGS (3)
  1. PLAVIX [Suspect]
     Indication: MYOCARDIAL INFARCTION
     Route: 065
     Dates: start: 2007, end: 20130221
  2. PLAVIX [Suspect]
     Indication: STENT PLACEMENT
     Route: 065
     Dates: start: 2007, end: 20130221
  3. CRESTOR [Concomitant]

REACTIONS (5)
  - Angina pectoris [Unknown]
  - Chest pain [Unknown]
  - Hyperhidrosis [Unknown]
  - Myocardial infarction [Unknown]
  - Drug dose omission [Unknown]
